FAERS Safety Report 4602521-5 (Version None)
Quarter: 2005Q1

REPORT INFORMATION
  Report Type: 
  Country: None (occurrence: None)
  Receive Date: 20050307
  Receipt Date: 20050218
  Transmission Date: 20050727
  Serious: Yes (Other)
  Sender: FDA-Public Use
  Company Number: 2004107639

PATIENT
  Age: 77 Year
  Sex: Female
  Weight: 150 kg

DRUGS (8)
  1. NORVASC [Suspect]
     Indication: HYPERTENSION
     Dosage: 5 MG (2 IN 1 D)
     Dates: start: 19990101
  2. LISINOPRIL [Suspect]
     Indication: HYPERTENSION
     Dosage: 5 MG (1 IN 1 D)
     Dates: end: 20041101
  3. LISINOPRIL [Suspect]
     Indication: HYPERTENSION
     Dosage: 5 MG (1 IN 1 D)
     Dates: start: 20020601
  4. CITRUS PARADISI FRUIT JUICE (CITRUS PARADISI FRUIT JUICE) [Suspect]
     Indication: ILL-DEFINED DISORDER
     Dosage: 8 OUNCE EACH NIGHT (1 D)
  5. SIMVASTATIN [Concomitant]
  6. GLIPIZIDE [Concomitant]
  7. CONJUGATED ESTROGENS [Concomitant]
  8. VITAMINS (VITAMINS) [Concomitant]

REACTIONS (4)
  - ANGIONEUROTIC OEDEMA [None]
  - FOOD INTERACTION [None]
  - LIP PAIN [None]
  - PHARMACEUTICAL PRODUCT COMPLAINT [None]
